FAERS Safety Report 15169029 (Version 1)
Quarter: 2018Q3

REPORT INFORMATION
  Report Type: Spontaneous
  Country: US (occurrence: US)
  Receive Date: 20180720
  Receipt Date: 20180720
  Transmission Date: 20181010
  Serious: No
  Sender: FDA-Public Use
  Company Number: US-ASTRAZENECA-2018SE82936

PATIENT
  Sex: Female
  Weight: 153 kg

DRUGS (2)
  1. ASPIRIN. [Concomitant]
     Active Substance: ASPIRIN
  2. FASENRA [Suspect]
     Active Substance: BENRALIZUMAB
     Indication: ASTHMA
     Route: 058
     Dates: start: 20180430

REACTIONS (4)
  - Oropharyngeal pain [Recovering/Resolving]
  - Polyp [Unknown]
  - Pharyngeal oedema [Unknown]
  - Sinus disorder [Unknown]
